FAERS Safety Report 17598825 (Version 2)
Quarter: 2020Q2

REPORT INFORMATION
  Report Type: Spontaneous
  Country: US (occurrence: US)
  Receive Date: 20200330
  Receipt Date: 20200601
  Transmission Date: 20200713
  Serious: No
  Sender: FDA-Public Use
  Company Number: US-BAYER-2020-051730

PATIENT
  Sex: Male

DRUGS (2)
  1. MIRALAX [Suspect]
     Active Substance: POLYETHYLENE GLYCOL 3350
     Indication: GASTROINTESTINAL DISORDER
     Dosage: HALF OF THE CAP DOSE
     Route: 048
  2. IBUPROFEN. [Concomitant]
     Active Substance: IBUPROFEN

REACTIONS (8)
  - Feeling abnormal [Unknown]
  - Drug ineffective [Unknown]
  - Dizziness [None]
  - Fatigue [Unknown]
  - Diarrhoea [Unknown]
  - Incorrect dose administered [Unknown]
  - Asthenia [Unknown]
  - Dizziness [Unknown]
